FAERS Safety Report 11012316 (Version 2)
Quarter: 2015Q2

REPORT INFORMATION
  Report Type: Spontaneous
  Country: US (occurrence: US)
  Receive Date: 20150411
  Receipt Date: 20150427
  Transmission Date: 20150821
  Serious: Yes (Hospitalization)
  Sender: FDA-Public Use
  Company Number: US-GLENMARK PHARMACEUTICALS EUROPE LIMITED-2015GMK015817

PATIENT
  Age: 44 Year
  Sex: Male

DRUGS (6)
  1. SILDENAFIL. [Concomitant]
     Active Substance: SILDENAFIL
     Indication: PRODUCT USED FOR UNKNOWN INDICATION
     Dosage: UNK, PRN
  2. LAMOTRIGINE. [Suspect]
     Active Substance: LAMOTRIGINE
     Indication: GENERALISED TONIC-CLONIC SEIZURE
     Dosage: 25 MG, OD (DAY 0 OF THERAPY)
  3. LAMOTRIGINE. [Interacting]
     Active Substance: LAMOTRIGINE
     Dosage: 100 MG, OD (DAY 29 OF THERAPY)
  4. LAMOTRIGINE. [Interacting]
     Active Substance: LAMOTRIGINE
     Dosage: 150 MG, OD
  5. GINSENG                            /01384001/ [Interacting]
     Active Substance: ASIAN GINSENG
     Indication: PRODUCT USED FOR UNKNOWN INDICATION
     Dosage: UNK
  6. LAMOTRIGINE. [Interacting]
     Active Substance: LAMOTRIGINE
     Dosage: 50 MG, OD (FROM DAY 15 TO 19 OF THERAPY)

REACTIONS (2)
  - Drug interaction [Unknown]
  - Drug reaction with eosinophilia and systemic symptoms [Unknown]
